FAERS Safety Report 6604278-5 (Version None)
Quarter: 2010Q1

REPORT INFORMATION
  Report Type: 
  Country: None (occurrence: None)
  Receive Date: 20100226
  Receipt Date: 20090804
  Transmission Date: 20100710
  Serious: No
  Sender: FDA-Public Use
  Company Number: A0800420A

PATIENT
  Sex: Female

DRUGS (3)
  1. LAMICTAL CD [Suspect]
     Indication: BIPOLAR DISORDER
     Dosage: 25MG PER DAY
     Route: 048
     Dates: start: 20090713, end: 20090730
  2. FISH OIL [Concomitant]
  3. ZOLPIDEM [Concomitant]

REACTIONS (4)
  - ALOPECIA [None]
  - FORMICATION [None]
  - PRURITUS [None]
  - VULVOVAGINAL ERYTHEMA [None]
